FAERS Safety Report 24738166 (Version 2)
Quarter: 2025Q1

REPORT INFORMATION
  Report Type: Spontaneous
  Country: JP (occurrence: JP)
  Receive Date: 20241216
  Receipt Date: 20250122
  Transmission Date: 20250408
  Serious: Yes (Life-Threatening, Other)
  Sender: ELI LILLY AND COMPANY
  Company Number: JP-ELI_LILLY_AND_COMPANY-JP202412006826

PATIENT
  Age: 67 Year
  Sex: Female

DRUGS (3)
  1. VERZENIO [Suspect]
     Active Substance: ABEMACICLIB
     Indication: Breast cancer stage IV
     Dosage: 150 MG, BID
     Route: 048
     Dates: start: 20240507, end: 20240521
  2. FASLODEX [Suspect]
     Active Substance: FULVESTRANT
     Indication: Breast cancer stage IV
     Route: 030
     Dates: start: 20240507
  3. DENOSUMAB [Concomitant]
     Active Substance: DENOSUMAB
     Indication: Metastases to bone
     Route: 058
     Dates: start: 20220817

REACTIONS (4)
  - Pulmonary embolism [Recovered/Resolved]
  - Malignant neoplasm progression [Unknown]
  - Neutrophil count decreased [Unknown]
  - Eastern Cooperative Oncology Group performance status worsened [Unknown]

NARRATIVE: CASE EVENT DATE: 20240521
